FAERS Safety Report 5214873-6 (Version None)
Quarter: 2007Q1

REPORT INFORMATION
  Report Type: 
  Country: None (occurrence: None)
  Receive Date: 20070122
  Receipt Date: 20070122
  Transmission Date: 20070707
  Serious: Yes (Hospitalization)
  Sender: FDA-Public Use
  Company Number: None

PATIENT
  Age: 42 Year
  Sex: Male
  Weight: 78 kg

DRUGS (1)
  1. LAMICTAL [Suspect]
     Indication: DEPRESSION
     Dates: start: 20061201, end: 20070112

REACTIONS (5)
  - ESCHAR [None]
  - RASH MACULO-PAPULAR [None]
  - STAPHYLOCOCCAL INFECTION [None]
  - SUPERINFECTION [None]
  - TENDERNESS [None]
